FAERS Safety Report 14234734 (Version 1)
Quarter: 2017Q4

REPORT INFORMATION
  Report Type: Spontaneous
  Country: FR (occurrence: FR)
  Receive Date: 20171129
  Receipt Date: 20171129
  Transmission Date: 20180321
  Serious: Yes (Life-Threatening, Hospitalization)
  Sender: FDA-Public Use
  Company Number: FR-ROCHE-2027927

PATIENT
  Age: 63 Year
  Sex: Female

DRUGS (7)
  1. ROACTEMRA [Suspect]
     Active Substance: TOCILIZUMAB
     Indication: RHEUMATOID ARTHRITIS
     Route: 058
     Dates: start: 20160419, end: 201707
  2. LETROZOLE. [Concomitant]
     Active Substance: LETROZOLE
  3. PRITOR [Concomitant]
     Active Substance: TELMISARTAN
  4. METHOTREXATE. [Concomitant]
     Active Substance: METHOTREXATE
  5. PANTOPRAZOLE [Concomitant]
     Active Substance: PANTOPRAZOLE
  6. DENOSUMAB [Concomitant]
     Active Substance: DENOSUMAB
  7. MONOTILDIEM [Concomitant]
     Active Substance: DILTIAZEM

REACTIONS (2)
  - Metastases to bone [Not Recovered/Not Resolved]
  - Breast cancer [Not Recovered/Not Resolved]

NARRATIVE: CASE EVENT DATE: 201707
